FAERS Safety Report 5232799-9 (Version None)
Quarter: 2007Q1

REPORT INFORMATION
  Report Type: 
  Country: None (occurrence: None)
  Receive Date: 20070206
  Receipt Date: 20070206
  Transmission Date: 20070707
  Serious: No
  Sender: FDA-Public Use
  Company Number: None

PATIENT
  Sex: Female
  Weight: 103.8737 kg

DRUGS (8)
  1. METFORMIN HCL [Suspect]
     Indication: DIABETES MELLITUS NON-INSULIN-DEPENDENT
     Dosage: 500 MG QD PO
     Route: 048
  2. INSULIN DETERMIR [Concomitant]
  3. INSULIN ASPART [Concomitant]
  4. LISINOPRIL [Concomitant]
  5. ASPIRIN [Concomitant]
  6. GABAPENTIN [Concomitant]
  7. CITALOPRAM HYDROBROMIDE [Concomitant]
  8. CLONAZEPAM [Concomitant]

REACTIONS (1)
  - RASH [None]
